FAERS Safety Report 10385079 (Version 2)
Quarter: 2014Q3

REPORT INFORMATION
  Report Type: Spontaneous
  Country: JP (occurrence: JP)
  Receive Date: 20140814
  Receipt Date: 20140907
  Transmission Date: 20150326
  Serious: Yes (Other)
  Sender: FDA-Public Use
  Company Number: PHHY2014JP100691

PATIENT
  Age: 64 Year
  Sex: Male

DRUGS (4)
  1. SUNITINIB [Concomitant]
     Active Substance: SUNITINIB
     Dosage: UNK UKN, UNK
     Dates: start: 201212
  2. SANDOSTATIN [Suspect]
     Active Substance: OCTREOTIDE ACETATE
     Dosage: UNK UKN, UNK
     Dates: start: 201308
  3. AFINITOR [Suspect]
     Active Substance: EVEROLIMUS
     Indication: PANCREATIC NEUROENDOCRINE TUMOUR
     Dosage: UNK UKN, UNK
     Dates: start: 201206
  4. STREPTOZOTOCIN [Concomitant]
     Active Substance: STREPTOZOCIN
     Dosage: UNK UKN, UNK
     Dates: start: 201110

REACTIONS (4)
  - Metastases to lymph nodes [Unknown]
  - Metastases to skin [Unknown]
  - Metastases to liver [Unknown]
  - Disease progression [Unknown]
